FAERS Safety Report 24655284 (Version 1)
Quarter: 2024Q4

REPORT INFORMATION
  Report Type: Spontaneous
  Country: CA (occurrence: CA)
  Receive Date: 20241123
  Receipt Date: 20241123
  Transmission Date: 20250114
  Serious: Yes (Other)
  Sender: CELLTRION
  Company Number: CA-PFIZER INC-202400302779

PATIENT

DRUGS (7)
  1. INFLECTRA [Suspect]
     Active Substance: INFLIXIMAB-DYYB
     Indication: Colitis ulcerative
     Dosage: INDUCTION WEEK 0 ,2, 6 THEN MAINTENANCE EVERY 8 WEEKS
     Route: 042
     Dates: start: 20220919, end: 20230224
  2. INFLECTRA [Suspect]
     Active Substance: INFLIXIMAB-DYYB
     Dosage: 7500 UG/KG
     Route: 042
     Dates: start: 20230405
  3. INFLECTRA [Suspect]
     Active Substance: INFLIXIMAB-DYYB
     Dosage: UNK
     Dates: start: 20241003
  4. INFLECTRA [Suspect]
     Active Substance: INFLIXIMAB-DYYB
     Dosage: 870 MG, 6 WEEKS
     Dates: start: 20241114
  5. PREDNISONE [Concomitant]
     Active Substance: PREDNISONE
     Route: 048
  6. PURINETHOL [Concomitant]
     Active Substance: MERCAPTOPURINE
  7. CORTISONE [Concomitant]
     Active Substance: CORTISONE
     Route: 048

REACTIONS (2)
  - Ear disorder [Unknown]
  - Dizziness [Recovering/Resolving]

NARRATIVE: CASE EVENT DATE: 20240101
